FAERS Safety Report 4992166-X (Version None)
Quarter: 2006Q2

REPORT INFORMATION
  Report Type: 
  Country: None (occurrence: None)
  Receive Date: 20060502
  Receipt Date: 20060419
  Transmission Date: 20061013
  Serious: Yes (Hospitalization)
  Sender: FDA-Public Use
  Company Number: 2004-03-0787

PATIENT
  Age: 52 Year
  Sex: Female

DRUGS (2)
  1. ETHYOL [Suspect]
     Indication: PROPHYLAXIS
     Dosage: INTRAVENOUS
     Route: 042
     Dates: start: 20040216, end: 20040301
  2. RADIATION THERAPY [Suspect]
     Indication: SALIVARY GLAND CANCER
     Dosage: OTHER
     Route: 050

REACTIONS (3)
  - C-REACTIVE PROTEIN INCREASED [None]
  - RASH ERYTHEMATOUS [None]
  - WHITE BLOOD CELL COUNT DECREASED [None]
